FAERS Safety Report 21308240 (Version 1)
Quarter: 2022Q3

REPORT INFORMATION
  Report Type: Spontaneous
  Country: US (occurrence: None)
  Receive Date: 20220907
  Receipt Date: 20220907
  Transmission Date: 20221026
  Serious: Yes (Hospitalization)
  Sender: FDA-Public Use
  Company Number: None

PATIENT
  Age: 30 Year
  Sex: Female
  Weight: 62.55 kg

DRUGS (1)
  1. FLAGYL [Suspect]
     Active Substance: METRONIDAZOLE\METRONIDAZOLE HYDROCHLORIDE
     Dosage: FREQUENCY : TWICE A DAY;?
     Route: 048
     Dates: start: 20220120, end: 20220121

REACTIONS (9)
  - Agitation [None]
  - Depression [None]
  - Panic attack [None]
  - Anxiety [None]
  - Hemiparesis [None]
  - Dizziness [None]
  - Cerebrovascular accident [None]
  - Magnetic resonance imaging head abnormal [None]
  - Brain stem syndrome [None]

NARRATIVE: CASE EVENT DATE: 20220121
